FAERS Safety Report 15693243 (Version 13)
Quarter: 2022Q3

REPORT INFORMATION
  Report Type: Report from Study
  Country: US (occurrence: US)
  Receive Date: 20181206
  Receipt Date: 20220428
  Transmission Date: 20221027
  Serious: Yes (Death, Hospitalization, Other)
  Sender: FDA-Public Use
  Company Number: US-INCYTE CORPORATION-2018IN012326

PATIENT

DRUGS (45)
  1. JAKAFI [Suspect]
     Active Substance: RUXOLITINIB
     Indication: Essential thrombocythaemia
     Dosage: 25 MILLIGRAM, BID
     Route: 048
     Dates: start: 20180102, end: 20190107
  2. JAKAFI [Suspect]
     Active Substance: RUXOLITINIB
     Indication: Myelofibrosis
     Dosage: 25 MILLIGRAM, BID
     Route: 065
     Dates: start: 20180817
  3. JAKAFI [Suspect]
     Active Substance: RUXOLITINIB
     Dosage: 20 MILLIGRAM, BID
     Route: 065
     Dates: start: 20190516
  4. CLOPIDOGREL [Concomitant]
     Active Substance: CLOPIDOGREL BISULFATE
     Indication: Anticoagulant therapy
     Dosage: 75 MG, QD
     Route: 048
     Dates: start: 20140116
  5. CLOPIDOGREL [Concomitant]
     Active Substance: CLOPIDOGREL BISULFATE
     Indication: Carotid artery disease
     Dosage: 75 MILLIGRAM, QD
     Route: 065
     Dates: start: 2014
  6. ASPIRIN [Concomitant]
     Active Substance: ASPIRIN
     Indication: Anticoagulant therapy
     Dosage: 81 MG, QD
     Route: 048
     Dates: start: 20140116
  7. ASPIRIN [Concomitant]
     Active Substance: ASPIRIN
     Dosage: 81 MILLIGRAM, QD
     Route: 065
     Dates: start: 2014
  8. ATORVASTATIN [Concomitant]
     Active Substance: ATORVASTATIN
     Indication: Hyperlipidaemia
     Dosage: 20 MG, QD
     Route: 048
     Dates: start: 2014, end: 20171201
  9. ATORVASTATIN [Concomitant]
     Active Substance: ATORVASTATIN
     Indication: Hypertension
  10. DOCUSATE SODIUM [Concomitant]
     Active Substance: DOCUSATE SODIUM
     Indication: Constipation
     Dosage: 100 MG, Q8H
     Route: 048
  11. GABAPENTIN [Concomitant]
     Active Substance: GABAPENTIN
     Indication: Pain
     Dosage: 800 MG, Q8H
     Route: 065
  12. GABAPENTIN [Concomitant]
     Active Substance: GABAPENTIN
     Indication: Neuropathy peripheral
     Dosage: 400 MILLIGRAM, QD
     Route: 065
     Dates: start: 20161012
  13. HEPARIN [Concomitant]
     Active Substance: HEPARIN SODIUM
     Indication: Prophylaxis
     Route: 065
  14. INSULIN ASPART [Concomitant]
     Active Substance: INSULIN ASPART
     Indication: Hypoglycaemia
     Route: 065
  15. LANTUS [Concomitant]
     Active Substance: INSULIN GLARGINE
     Indication: Diabetes mellitus
     Dosage: 100 INTERNATIONAL UNIT, QD
     Route: 065
     Dates: start: 20140904, end: 20180313
  16. MELATONIN [Concomitant]
     Active Substance: MELATONIN
     Indication: Insomnia
     Dosage: 3 MG, QD
     Route: 065
     Dates: start: 20180123
  17. METOPROLOL SUCCINATE [Concomitant]
     Active Substance: METOPROLOL SUCCINATE
     Indication: Hypertension
     Dosage: UNK
     Route: 065
  18. MULTIVITAMIN                       /07504101/ [Concomitant]
     Indication: Supplementation therapy
     Route: 065
  19. NORTRIPTYLINE [Concomitant]
     Active Substance: NORTRIPTYLINE
     Indication: Product used for unknown indication
     Dosage: 75 MG, UNK
     Route: 048
  20. PIPERACILLIN SODIUM\TAZOBACTAM SODIUM [Concomitant]
     Active Substance: PIPERACILLIN SODIUM\TAZOBACTAM SODIUM
     Indication: Surgical preconditioning
     Route: 065
  21. RIVAROXABAN [Concomitant]
     Active Substance: RIVAROXABAN
     Indication: Atrial fibrillation
     Dosage: 20 MG, UNK
     Route: 048
     Dates: start: 20190429
  22. RIVAROXABAN [Concomitant]
     Active Substance: RIVAROXABAN
     Indication: Prophylaxis
  23. ALPHA LIPOIC ACID [Concomitant]
     Active Substance: .ALPHA.-LIPOIC ACID
     Indication: Diabetes mellitus
     Dosage: 100 MILLIGRAM, QD
     Route: 065
     Dates: start: 20190128
  24. AMMONIUM LACTATE [Concomitant]
     Active Substance: AMMONIUM LACTATE
     Indication: Pruritus
     Dosage: 12 PERCENT, PRN
     Route: 065
     Dates: start: 20180613
  25. ARTIFICIAL TEARS                   /00222401/ [Concomitant]
     Indication: Dry eye
     Dosage: 1.4 PERCENT
     Route: 065
     Dates: start: 20140513
  26. BENFOTIAMINE [Concomitant]
     Active Substance: BENFOTIAMINE
     Indication: Neuropathy peripheral
     Dosage: 150 MILLIGRAM, QD
     Route: 065
     Dates: start: 20190128
  27. VITAMIN D                          /00107901/ [Concomitant]
     Indication: Supplementation therapy
     Dosage: 2000 INTERNATIONAL UNIT, QD
     Route: 065
     Dates: start: 20170227
  28. COLLAGENASE [Concomitant]
     Active Substance: COLLAGENASE CLOSTRIDIUM HISTOLYTICUM
     Indication: Gangrene
     Dosage: QD
     Route: 065
     Dates: start: 20160307
  29. LISINOPRIL [Concomitant]
     Active Substance: LISINOPRIL
     Indication: Hypertension
     Dosage: 10 MILLIGRAM, QD
     Route: 065
     Dates: start: 20140325
  30. MAGNESIUM [Concomitant]
     Active Substance: MAGNESIUM
     Indication: Supplementation therapy
     Dosage: 400 MILLIGRAM, BID
     Route: 065
     Dates: start: 20170131
  31. MAGNESIUM OXIDE [Concomitant]
     Active Substance: MAGNESIUM OXIDE
     Indication: Supplementation therapy
     Dosage: 400 MILLIGRAM, BID
     Route: 065
     Dates: start: 20171127
  32. METFORMIN HYDROCHLORIDE [Concomitant]
     Active Substance: METFORMIN HYDROCHLORIDE
     Indication: Diabetes mellitus
     Dosage: 1000 MILLIGRAM, BID
     Route: 065
     Dates: start: 2014, end: 20180125
  33. METOPROLOL SUCCINATE [Concomitant]
     Active Substance: METOPROLOL SUCCINATE
     Indication: Carotid artery disease
     Dosage: 50 MILLIGRAM, QD
     Route: 065
     Dates: start: 2014
  34. MUPIROCIN [Concomitant]
     Active Substance: MUPIROCIN
     Indication: Infection
     Dosage: 2 PERCENT, TID
     Route: 065
     Dates: start: 2016
  35. NICOTINE [Concomitant]
     Active Substance: NICOTINE
     Indication: Smoking cessation therapy
     Dosage: 21 MILLIGRAM, QD
     Route: 065
     Dates: start: 2016
  36. OMEPRAZOLE [Concomitant]
     Active Substance: OMEPRAZOLE
     Indication: Nausea
     Dosage: 20 MILLIGRAM, PRN
     Route: 065
     Dates: start: 2014
  37. OXYCODONE HYDROCHLORIDE [Concomitant]
     Active Substance: OXYCODONE HYDROCHLORIDE
     Indication: Pain
     Dosage: 10 MILLIGRAM, PRN
     Route: 065
     Dates: start: 2017, end: 201811
  38. BACTRIM DS [Concomitant]
     Active Substance: SULFAMETHOXAZOLE\TRIMETHOPRIM
     Indication: Infection
     Dosage: 160 MILLIGRAM, BID
     Route: 065
     Dates: start: 20180530, end: 20180820
  39. TRAZODONE [Concomitant]
     Active Substance: TRAZODONE HYDROCHLORIDE
     Indication: Depression
     Dosage: 100 MILLIGRAM, QD
     Route: 065
     Dates: start: 20140116
  40. XARELTO [Concomitant]
     Active Substance: RIVAROXABAN
     Indication: Carotid artery disease
     Dosage: 200 MILLIGRAM, QD
     Route: 065
     Dates: start: 20180605, end: 20190429
  41. XARELTO [Concomitant]
     Active Substance: RIVAROXABAN
     Dosage: 20 MILLIGRAM, QD
     Route: 065
     Dates: start: 20190429
  42. INSULIN GLARGINE [Concomitant]
     Active Substance: INSULIN GLARGINE
     Indication: Diabetes mellitus
     Dosage: 100 UNITS
     Route: 065
     Dates: start: 20140904, end: 20180313
  43. OXYCODONE AND ACETAMINOPHEN [Concomitant]
     Active Substance: ACETAMINOPHEN\OXYCODONE HYDROCHLORIDE
     Indication: Pain
     Dosage: 10 MILLIGRAM PRN
     Route: 065
     Dates: start: 20181001, end: 201811
  44. OXYCODONE AND ACETAMINOPHEN [Concomitant]
     Active Substance: ACETAMINOPHEN\OXYCODONE HYDROCHLORIDE
     Indication: Foot amputation
  45. SERTRALINE HYDROCHLORIDE [Concomitant]
     Active Substance: SERTRALINE HYDROCHLORIDE
     Indication: Depression
     Dosage: 50 MILLIGRAM, QD
     Route: 065
     Dates: start: 20190506

REACTIONS (28)
  - Death [Fatal]
  - Osteomyelitis [Recovering/Resolving]
  - Hepatitis B [Not Recovered/Not Resolved]
  - Bipolar disorder [Not Recovered/Not Resolved]
  - Lacunar infarction [Recovered/Resolved]
  - Cerebral infarction [Recovered/Resolved]
  - Hyperkalaemia [Recovered/Resolved]
  - Kidney infection [Recovered/Resolved]
  - Headache [Recovered/Resolved]
  - Arthralgia [Recovered/Resolved]
  - Joint swelling [Recovered/Resolved]
  - Vomiting [Recovered/Resolved]
  - Nail infection [Recovering/Resolving]
  - Peripheral arterial occlusive disease [Not Recovered/Not Resolved]
  - Pain in extremity [Not Recovered/Not Resolved]
  - Abdominal discomfort [Not Recovered/Not Resolved]
  - Non-cardiac chest pain [Recovered/Resolved]
  - Wound [Recovered/Resolved]
  - Hyperlipidaemia [Not Recovered/Not Resolved]
  - Nausea [Recovered/Resolved]
  - Dyspnoea [Recovered/Resolved]
  - Dizziness [Recovered/Resolved]
  - Anaemia [Not Recovered/Not Resolved]
  - Fatigue [Not Recovered/Not Resolved]
  - Headache [Not Recovered/Not Resolved]
  - Dyspnoea [Not Recovered/Not Resolved]
  - Dizziness [Recovered/Resolved]
  - Nausea [Recovered/Resolved]

NARRATIVE: CASE EVENT DATE: 20180101
